FAERS Safety Report 5530311-8 (Version None)
Quarter: 2007Q4

REPORT INFORMATION
  Report Type: 
  Country: None (occurrence: None)
  Receive Date: 20071127
  Receipt Date: 20071127
  Transmission Date: 20080405
  Serious: No
  Sender: FDA-Public Use
  Company Number: None

PATIENT
  Sex: Female
  Weight: 52.1637 kg

DRUGS (1)
  1. CIPRO [Suspect]

REACTIONS (4)
  - ARTHRALGIA [None]
  - DISEASE RECURRENCE [None]
  - SINUSITIS [None]
  - TENDON RUPTURE [None]
